FAERS Safety Report 8458331-4 (Version None)
Quarter: 2012Q2

REPORT INFORMATION
  Report Type: 
  Country: None (occurrence: None)
  Receive Date: 20120622
  Receipt Date: 20120608
  Transmission Date: 20120825
  Serious: Yes (Death, Other)
  Sender: FDA-Public Use
  Company Number: FR-RANBAXY-2011RR-44368

PATIENT
  Age: 25 Year
  Sex: Male

DRUGS (2)
  1. MEMANTINE HCL [Suspect]
     Indication: AMNESIA
     Route: 065
  2. DONEPEZIL HCL [Suspect]
     Indication: MEMORY IMPAIRMENT
     Dosage: 10 MG, UNK
     Route: 065

REACTIONS (1)
  - VENTRICULAR FIBRILLATION [None]
